FAERS Safety Report 5202221-7 (Version None)
Quarter: 2007Q1

REPORT INFORMATION
  Report Type: 
  Country: None (occurrence: None)
  Receive Date: 20070109
  Receipt Date: 20061229
  Transmission Date: 20070707
  Serious: Yes (Hospitalization)
  Sender: FDA-Public Use
  Company Number: TR-NOVOPROD-259120

PATIENT
  Age: 33 Year
  Sex: Female

DRUGS (3)
  1. NOVORAPID [Suspect]
     Dosage: 10 U, TID
     Route: 058
  2. LANTUS [Suspect]
     Indication: DIABETES MELLITUS INSULIN-DEPENDENT
     Dosage: 22 U, QD
     Route: 058
  3. FERRO SANOL [Concomitant]
     Dosage: 20 MG, QD
     Dates: start: 20040617

REACTIONS (5)
  - CAESAREAN SECTION [None]
  - GLUCOSE TOLERANCE IMPAIRED IN PREGNANCY [None]
  - PLACENTAL DISORDER [None]
  - PREGNANCY [None]
  - PREMATURE LABOUR [None]
